FAERS Safety Report 22698380 (Version 3)
Quarter: 2024Q1

REPORT INFORMATION
  Report Type: Spontaneous
  Country: US (occurrence: US)
  Receive Date: 20230712
  Receipt Date: 20240126
  Transmission Date: 20240409
  Serious: No
  Sender: FDA-Public Use
  Company Number: US-KARYOPHARM-2023KPT001515

PATIENT

DRUGS (14)
  1. XPOVIO [Suspect]
     Active Substance: SELINEXOR
     Indication: Plasma cell myeloma
     Dosage: 80 MG, WEEKLY
     Route: 048
  2. DECADRON [Concomitant]
     Active Substance: DEXAMETHASONE
  3. DONEPEZIL HYDROCHLORIDE [Concomitant]
     Active Substance: DONEPEZIL HYDROCHLORIDE
  4. FOLIC ACID [Concomitant]
     Active Substance: FOLIC ACID
  5. IRBESARTAN [Concomitant]
     Active Substance: IRBESARTAN
  6. ONDANSETRON [Concomitant]
     Active Substance: ONDANSETRON
  7. PANTOPRAZOLE [Concomitant]
     Active Substance: PANTOPRAZOLE
  8. RENVELA [Concomitant]
     Active Substance: SEVELAMER CARBONATE
  9. SENSIPAR [Concomitant]
     Active Substance: CINACALCET HYDROCHLORIDE
  10. SIMVASTATIN [Concomitant]
     Active Substance: SIMVASTATIN
  11. TAMSULOSIN [Concomitant]
     Active Substance: TAMSULOSIN
  12. TRAMADOL [Concomitant]
     Active Substance: TRAMADOL\TRAMADOL HYDROCHLORIDE
  13. TRAZODONE [Concomitant]
     Active Substance: TRAZODONE HYDROCHLORIDE
  14. REVLIMID [Concomitant]
     Active Substance: LENALIDOMIDE

REACTIONS (8)
  - Eructation [Unknown]
  - Abdominal discomfort [Unknown]
  - Tooth extraction [Unknown]
  - Diarrhoea [Not Recovered/Not Resolved]
  - Dizziness [Not Recovered/Not Resolved]
  - Asthenia [Unknown]
  - Confusional state [Unknown]
  - Product dose omission issue [Unknown]

NARRATIVE: CASE EVENT DATE: 20230619
